FAERS Safety Report 20047436 (Version 1)
Quarter: 2021Q4

REPORT INFORMATION
  Report Type: Spontaneous
  Country: US (occurrence: US)
  Receive Date: 20211109
  Receipt Date: 20211109
  Transmission Date: 20220303
  Serious: No
  Sender: FDA-Public Use
  Company Number: US-ORGANON-O2110USA002337

PATIENT
  Age: 75 Year
  Sex: Male

DRUGS (3)
  1. SINEMET [Suspect]
     Active Substance: CARBIDOPA\LEVODOPA
     Indication: Camptocormia
     Dosage: UNK
     Route: 048
  2. ARTANE [ARTEMETHER] [Concomitant]
     Indication: Camptocormia
     Dosage: UNK
  3. BOTULINUM TOXIN NOS [Concomitant]
     Active Substance: BOTULINUM TOXIN NOS
     Indication: Camptocormia
     Dosage: UNK

REACTIONS (1)
  - Product use in unapproved indication [Unknown]
